FAERS Safety Report 8029128-4 (Version None)
Quarter: 2012Q1

REPORT INFORMATION
  Report Type: 
  Country: None (occurrence: None)
  Receive Date: 20120106
  Receipt Date: 20120103
  Transmission Date: 20120608
  Serious: Yes (Hospitalization)
  Sender: FDA-Public Use
  Company Number: PHEH2011US010844

PATIENT
  Sex: Female

DRUGS (2)
  1. ZOMETA [Suspect]
     Dosage: UNK UKN, UNK
     Route: 042
     Dates: start: 20111001, end: 20111205
  2. STEROIDS NOS [Concomitant]

REACTIONS (4)
  - SWELLING [None]
  - OEDEMA PERIPHERAL [None]
  - JOINT SWELLING [None]
  - EYE SWELLING [None]
